FAERS Safety Report 5160715-7 (Version None)
Quarter: 2006Q4

REPORT INFORMATION
  Report Type: 
  Country: None (occurrence: None)
  Receive Date: 20061121
  Receipt Date: 20061107
  Transmission Date: 20070319
  Serious: Yes (Other)
  Sender: FDA-Public Use
  Company Number: 2006RL000408

PATIENT
  Sex: Female

DRUGS (2)
  1. OMACOR (1 GM) [Suspect]
     Indication: BLOOD CHOLESTEROL INCREASED
     Dosage: ;UNK; UNK
  2. AMICAR [Suspect]
     Indication: DRUG USE FOR UNKNOWN INDICATION
     Dosage: ;UNK; UNK

REACTIONS (1)
  - INTERCEPTED MEDICATION ERROR [None]
